FAERS Safety Report 7103693-3 (Version None)
Quarter: 2010Q4

REPORT INFORMATION
  Report Type: 
  Country: None (occurrence: None)
  Receive Date: 20101115
  Receipt Date: 20101111
  Transmission Date: 20110411
  Serious: Yes (Hospitalization)
  Sender: FDA-Public Use
  Company Number: IT-ABBOTT-10P-083-0677440-00

PATIENT
  Sex: Female
  Weight: 63 kg

DRUGS (7)
  1. CLARITHROMYCIN [Suspect]
     Indication: PYREXIA
     Dates: start: 20100701, end: 20100822
  2. IBUPROFEN TABLETS [Suspect]
     Indication: PRODUCT USED FOR UNKNOWN INDICATION
     Dates: end: 20100822
  3. LAMOTRIGINE [Suspect]
     Indication: BIPOLAR DISORDER
     Route: 048
     Dates: start: 20100710, end: 20100822
  4. LAMOTRIGINE [Suspect]
     Route: 048
  5. FLUOXETINA [Concomitant]
     Indication: BIPOLAR DISORDER
     Dates: start: 20070101, end: 20100822
  6. PARACETAMOL [Concomitant]
     Indication: PRODUCT USED FOR UNKNOWN INDICATION
  7. ANTIHELMINTIC AGENT [Concomitant]
     Indication: PRODUCT USED FOR UNKNOWN INDICATION

REACTIONS (2)
  - HEPATITIS ACUTE [None]
  - MONONUCLEOSIS SYNDROME [None]
